FAERS Safety Report 11751702 (Version 1)
Quarter: 2015Q4

REPORT INFORMATION
  Report Type: Spontaneous
  Country: FR (occurrence: FR)
  Receive Date: 20151118
  Receipt Date: 20151118
  Transmission Date: 20160304
  Serious: Yes (Hospitalization, Other)
  Sender: FDA-Public Use
  Company Number: FR-BAXTER-2015BAX060821

PATIENT
  Age: 60 Year
  Sex: Male

DRUGS (17)
  1. VELCADE [Suspect]
     Active Substance: BORTEZOMIB
     Dosage: 5 COURSES IN TOTAL
     Route: 042
     Dates: start: 20150914
  2. VELCADE [Suspect]
     Active Substance: BORTEZOMIB
     Dosage: 5 COURSES IN TOTAL
     Route: 042
     Dates: start: 20150917
  3. PENTACARINAT [Concomitant]
     Active Substance: PENTAMIDINE ISETHIONATE
     Indication: PRODUCT USED FOR UNKNOWN INDICATION
     Route: 065
  4. ENDOXAN 1000 MG, POUDRE POUR SOLUTION INJECTABLE [Suspect]
     Active Substance: CYCLOPHOSPHAMIDE
     Dosage: 6 COURSES IN TOTAL
     Route: 042
     Dates: start: 20151005
  5. VELCADE [Suspect]
     Active Substance: BORTEZOMIB
     Indication: PLASMA CELL MYELOMA
     Dosage: 6 COURSES
     Route: 065
     Dates: start: 20150313, end: 20150731
  6. INEXIUM [Concomitant]
     Active Substance: ESOMEPRAZOLE
     Indication: PRODUCT USED FOR UNKNOWN INDICATION
     Route: 065
  7. ENDOXAN 1000 MG, POUDRE POUR SOLUTION INJECTABLE [Suspect]
     Active Substance: CYCLOPHOSPHAMIDE
     Dosage: 6 COURSES IN TOTAL
     Route: 042
     Dates: start: 20150921
  8. VELCADE [Suspect]
     Active Substance: BORTEZOMIB
     Dosage: 5 COURSES IN TOTAL
     Route: 042
     Dates: start: 20150928
  9. DEXAMETHASONE. [Suspect]
     Active Substance: DEXAMETHASONE
     Indication: PLASMA CELL MYELOMA
     Dosage: 6 COURSES
     Route: 065
     Dates: start: 20150313, end: 20150731
  10. ENDOXAN 1000 MG, POUDRE POUR SOLUTION INJECTABLE [Suspect]
     Active Substance: CYCLOPHOSPHAMIDE
     Indication: PLASMA CELL MYELOMA
     Dosage: 6 COURSES IN TOTAL
     Route: 042
     Dates: start: 20150907
  11. ENDOXAN 1000 MG, POUDRE POUR SOLUTION INJECTABLE [Suspect]
     Active Substance: CYCLOPHOSPHAMIDE
     Dosage: 6 COURSES IN TOTAL
     Route: 042
     Dates: start: 20150914
  12. ENDOXAN 1000 MG, POUDRE POUR SOLUTION INJECTABLE [Suspect]
     Active Substance: CYCLOPHOSPHAMIDE
     Dosage: 6 COURSES IN TOTAL
     Route: 042
     Dates: start: 20151012
  13. VELCADE [Suspect]
     Active Substance: BORTEZOMIB
     Dosage: 5 COURSES IN TOTAL
     Route: 042
     Dates: start: 20150907
  14. ZELITREX [Concomitant]
     Active Substance: VALACYCLOVIR HYDROCHLORIDE
     Indication: PRODUCT USED FOR UNKNOWN INDICATION
     Dosage: IN THE MORNING AND IN THE EVENING
     Route: 065
  15. DUROGESIC [Concomitant]
     Active Substance: FENTANYL
     Indication: PRODUCT USED FOR UNKNOWN INDICATION
     Route: 065
  16. ENDOXAN 1000 MG, POUDRE POUR SOLUTION INJECTABLE [Suspect]
     Active Substance: CYCLOPHOSPHAMIDE
     Dosage: 6 COURSES IN TOTAL
     Route: 042
     Dates: start: 20150928
  17. VELCADE [Suspect]
     Active Substance: BORTEZOMIB
     Dosage: 5 COURSES IN TOTAL
     Route: 042
     Dates: start: 20150910

REACTIONS (6)
  - Loss of consciousness [Unknown]
  - Rib fracture [Unknown]
  - Fall [Unknown]
  - Weight decreased [Not Recovered/Not Resolved]
  - Dehydration [Unknown]
  - Diarrhoea [Recovered/Resolved]

NARRATIVE: CASE EVENT DATE: 201507
